FAERS Safety Report 7300998-8 (Version None)
Quarter: 2010Q4

REPORT INFORMATION
  Report Type: 
  Country: None (occurrence: None)
  Receive Date: 20101230
  Receipt Date: 20100419
  Transmission Date: 20110411
  Serious: Yes (Other)
  Sender: FDA-Public Use
  Company Number: 20100172

PATIENT
  Age: 18 Year
  Sex: Female

DRUGS (6)
  1. VENOFER [Suspect]
     Indication: IRON DEFICIENCY ANAEMIA
     Dosage: 500 MG OVER 4-5 HOURS, INTRAVENOUS
     Route: 042
     Dates: start: 20100415, end: 20100415
  2. ATENOLOL [Concomitant]
  3. FLORINEF [Concomitant]
  4. PROTONIX [Concomitant]
  5. SEASONALE [Concomitant]
  6. LEVOTHYROXINE [Concomitant]

REACTIONS (1)
  - HYPERSENSITIVITY [None]
